APPROVED DRUG PRODUCT: HYDROXYUREA
Active Ingredient: HYDROXYUREA
Strength: 500MG
Dosage Form/Route: CAPSULE;ORAL
Application: A213438 | Product #001 | TE Code: AB
Applicant: LEADING PHARMA LLC
Approved: Apr 8, 2020 | RLD: No | RS: No | Type: RX